FAERS Safety Report 10412230 (Version 2)
Quarter: 2014Q3

REPORT INFORMATION
  Report Type: Report from Study
  Country: CO (occurrence: CO)
  Receive Date: 20140827
  Receipt Date: 20140827
  Transmission Date: 20150326
  Serious: Yes (Disabling, Other)
  Sender: FDA-Public Use
  Company Number: CO-BAYER-2014-112771

PATIENT
  Age: 74 Year
  Sex: Female

DRUGS (4)
  1. INSULIN [Concomitant]
     Active Substance: INSULIN NOS
     Indication: DIABETES MELLITUS
     Route: 065
  2. NEXAVAR [Suspect]
     Active Substance: SORAFENIB
     Indication: THYROID CANCER
     Dosage: 200 MG, BID
     Route: 048
     Dates: start: 20131125, end: 201407
  3. LEVOTHYROXINE [Concomitant]
     Active Substance: LEVOTHYROXINE
     Indication: HYPOTHYROIDISM
     Route: 048
  4. LOSARTAN [Concomitant]
     Active Substance: LOSARTAN
     Indication: HYPERTENSION
     Route: 048

REACTIONS (6)
  - Anaemia [Recovering/Resolving]
  - Gait disturbance [Not Recovered/Not Resolved]
  - Bone pain [Recovering/Resolving]
  - Hyperkeratosis [Recovering/Resolving]
  - Lung neoplasm [Not Recovered/Not Resolved]
  - Glossodynia [Recovering/Resolving]

NARRATIVE: CASE EVENT DATE: 201404
